FAERS Safety Report 9733959 (Version 3)
Quarter: 2014Q1

REPORT INFORMATION
  Report Type: Spontaneous
  Country: JP (occurrence: JP)
  Receive Date: 20131205
  Receipt Date: 20140210
  Transmission Date: 20141002
  Serious: Yes (Life-Threatening, Hospitalization, Other)
  Sender: FDA-Public Use
  Company Number: JP-PFIZER INC-2013344716

PATIENT
  Age: 78 Year
  Sex: Male
  Weight: 49.8 kg

DRUGS (16)
  1. VFEND [Suspect]
     Indication: BRONCHOPULMONARY ASPERGILLOSIS ALLERGIC
     Dosage: 150 MG, 2X/DAY
     Route: 048
     Dates: start: 20130611, end: 20131009
  2. VFEND [Suspect]
     Indication: BRONCHOPULMONARY ASPERGILLOSIS ALLERGIC
     Dosage: UNK
     Route: 041
     Dates: start: 20131010, end: 20131015
  3. XOLAIR [Concomitant]
     Indication: ASTHMA
     Dosage: 300 MG, MONTHLY
     Route: 058
     Dates: start: 20130731
  4. PREDNISOLONE [Concomitant]
     Dosage: 30 MG, 2X/DAY
     Route: 048
     Dates: start: 2013, end: 20131009
  5. BONALON [Concomitant]
     Dosage: 35 MG, WEEKLY
     Route: 048
     Dates: end: 201310
  6. PAXIL CR [Concomitant]
     Dosage: 12.5 MG, 1X/DAY
     Route: 048
     Dates: end: 201310
  7. THEODUR [Concomitant]
     Dosage: 100 MG, 2X/DAY
     Route: 048
  8. SINGULAIR [Concomitant]
     Dosage: 10 MG, 1X/DAY
     Route: 048
  9. TAKEPRON OD [Concomitant]
     Dosage: 30 MG, 1X/DAY
     Route: 048
  10. XYZAL [Concomitant]
     Dosage: 5 MG, 1X/DAY
     Route: 048
     Dates: end: 201310
  11. ZYLORIC [Concomitant]
     Dosage: 50 MG, 1X/DAY
     Route: 048
     Dates: end: 201310
  12. MUCODYNE [Concomitant]
     Dosage: 500 MG, 3X/DAY
     Route: 048
  13. MUCOSOLVAN [Concomitant]
     Dosage: 15 MG, 3X/DAY
     Route: 048
  14. HOKUNALIN [Concomitant]
     Dosage: 2 MG, 1X/DAY
     Route: 062
  15. SPIRIVA [Concomitant]
     Dosage: 2.5 UG, 1X/DAY
     Route: 061
     Dates: start: 201306
  16. ALVESCO [Concomitant]
     Dosage: 400 UG, 2X/DAY
     Route: 061

REACTIONS (1)
  - Interstitial lung disease [Recovering/Resolving]
